FAERS Safety Report 9128593 (Version 2)
Quarter: 2013Q2

REPORT INFORMATION
  Report Type: Report from Study
  Country: US (occurrence: US)
  Receive Date: 20130125
  Receipt Date: 20130412
  Transmission Date: 20140414
  Serious: Yes (Other)
  Sender: FDA-Public Use
  Company Number: US-VERTEX PHARMACEUTICALS INC.-2013-001126

PATIENT
  Age: 58 Year
  Sex: Male
  Weight: 77 kg

DRUGS (6)
  1. VX-950 (TELAPREVIR) [Suspect]
     Indication: HEPATITIS C
     Dosage: 750 MG, TID
     Route: 048
     Dates: start: 20121102, end: 20130125
  2. PEGINTRON /01543001/ [Suspect]
     Indication: HEPATITIS C
     Dosage: UNK
  3. RIBAPAK [Suspect]
     Indication: HEPATITIS C
     Dosage: UNK
  4. ATENOLOL [Concomitant]
  5. OMEPRAZOLE [Concomitant]
  6. IBUPROFEN [Concomitant]

REACTIONS (9)
  - Haemoglobin decreased [Recovered/Resolved]
  - Influenza like illness [Recovered/Resolved]
  - Pyrexia [Not Recovered/Not Resolved]
  - Eye irritation [Not Recovered/Not Resolved]
  - Decreased appetite [Not Recovered/Not Resolved]
  - Fatigue [Not Recovered/Not Resolved]
  - Diarrhoea [Unknown]
  - Anal pruritus [Not Recovered/Not Resolved]
  - Anorectal discomfort [Not Recovered/Not Resolved]
